FAERS Safety Report 7242013-0 (Version None)
Quarter: 2011Q1

REPORT INFORMATION
  Report Type: 
  Country: None (occurrence: None)
  Receive Date: 20110124
  Receipt Date: 20110114
  Transmission Date: 20110831
  Serious: Yes (Life-Threatening, Hospitalization)
  Sender: FDA-Public Use
  Company Number: US-ROCHE-753985

PATIENT
  Sex: Female
  Weight: 82.6 kg

DRUGS (25)
  1. PERCOCET [Concomitant]
     Dosage: DRUG: PERCOCET 10/325, ONE ORAL TWICE DAILY.
     Route: 048
  2. PERCOCET [Concomitant]
     Dosage: 5/325 ONE TO TWO TABLETS EVERY FOUR HOUR FOR PAIN.
     Route: 048
  3. CARDIZEM [Concomitant]
     Dosage: DRUG: CARDIZEM CD 240.
     Dates: end: 20110107
  4. TRIAMTERENE AND HYDROCHLOROTHIAZIDE [Concomitant]
     Dosage: 25/37.5
     Dates: end: 20110107
  5. POTASSIUM CHLORIDE [Concomitant]
     Dosage: DRUG; POTASSIUM CHLORIDE 10 MEQ EXTENDED RELEASE.
  6. PREMPRO [Concomitant]
     Dosage: 0.625/2.5 ONE DAILY.
     Route: 048
  7. LEFLUNOMIDE [Concomitant]
     Dates: end: 20101201
  8. FENTANYL [Concomitant]
  9. FISH OIL [Concomitant]
  10. OMEPRAZOLE [Concomitant]
     Route: 048
  11. ACTEMRA [Suspect]
     Indication: RHEUMATOID ARTHRITIS
     Dosage: FORM: INFUSION.
     Route: 042
     Dates: start: 20100622
  12. FLONASE [Concomitant]
     Dosage: DRUG: FLONASE 2 PUFFS. FREQUENCY: AS NEEDED.
  13. FUROSEMIDE [Concomitant]
     Route: 048
  14. FLEXERIL [Concomitant]
     Dosage: AT BEDTIME. AS NEEDED.
     Route: 048
  15. ASCORBIC ACID [Concomitant]
  16. PRAVASTATIN [Concomitant]
     Dosage: AT BEDTIME.
     Route: 048
  17. BENADRYL [Concomitant]
     Dosage: AT BEDTIME. AS NEEDED.
     Route: 048
  18. ALBUTEROL [Concomitant]
     Dosage: MULTIDOSE INHALER TWO PUFFS. AS NEEDED.
  19. FOLIC ACID [Concomitant]
  20. CALCIUM/VITAMIN D [Concomitant]
     Dosage: DRUG: CALCIUM WITH VITAMIN D 500/200.
     Route: 048
  21. ADVAIR [Concomitant]
     Dosage: 500/50.
  22. LUNESTA [Concomitant]
     Dosage: AT BEDTIME. AS NEEDED.
     Route: 048
  23. ASPIRIN [Concomitant]
     Route: 048
  24. COMPAZINE [Concomitant]
  25. CELEBREX [Concomitant]
     Dosage: AS NEEDED.
     Route: 048

REACTIONS (2)
  - ACUTE CORONARY SYNDROME [None]
  - CARDIAC FAILURE CONGESTIVE [None]
